FAERS Safety Report 6963778-9 (Version None)
Quarter: 2010Q3

REPORT INFORMATION
  Report Type: 
  Country: None (occurrence: None)
  Receive Date: 20100902
  Receipt Date: 20100825
  Transmission Date: 20110219
  Serious: Yes (Hospitalization)
  Sender: FDA-Public Use
  Company Number: TN-WATSON-2010-11535

PATIENT
  Age: 42 Year
  Sex: Female

DRUGS (2)
  1. HALOPERIDOL (WATSON LABORATORIES) [Suspect]
     Indication: POSTPARTUM DEPRESSION
     Dosage: 5 MG, DAILY
  2. PARLODEL [Suspect]
     Indication: HYPERPROLACTINAEMIA
     Dosage: UNK

REACTIONS (6)
  - APATHY [None]
  - ATTENTION DEFICIT/HYPERACTIVITY DISORDER [None]
  - FATIGUE [None]
  - HYPERPROLACTINAEMIA [None]
  - PITUITARY TUMOUR BENIGN [None]
  - SOCIAL AVOIDANT BEHAVIOUR [None]
